FAERS Safety Report 4757913-0 (Version None)
Quarter: 2005Q3

REPORT INFORMATION
  Report Type: 
  Country: None (occurrence: None)
  Receive Date: 20050830
  Receipt Date: 20050819
  Transmission Date: 20060218
  Serious: Yes (Hospitalization)
  Sender: FDA-Public Use
  Company Number: 2005US000707

PATIENT
  Age: 36 Year
  Sex: Male

DRUGS (16)
  1. PROGRAF [Suspect]
     Indication: PROPHYLAXIS AGAINST TRANSPLANT REJECTION
     Dosage: ORAL
     Route: 048
     Dates: start: 20050308
  2. MYCOPHENOLATE MOFETIL (MYCOPHENOLATE MOFETIL) [Suspect]
     Indication: PROPHYLAXIS AGAINST TRANSPLANT REJECTION
     Dosage: 500.00 MG, QID, ORAL
     Route: 048
     Dates: start: 20050308, end: 20050527
  3. PREDNISONE [Suspect]
     Indication: PROPHYLAXIS AGAINST TRANSPLANT REJECTION
     Dosage: 10.00 MG, UID/QD, ORAL
     Route: 048
     Dates: start: 20050309
  4. K-PHOS (POTASSIUM PHOSPHATE MONOBASIC) [Concomitant]
  5. ALLOPURINOL [Concomitant]
  6. PROCARDIA XL [Concomitant]
  7. COREG [Concomitant]
  8. COLCHICINE (COLCHICINE) [Concomitant]
  9. GLUCOTROL [Concomitant]
  10. LIPITOR [Concomitant]
  11. BACTRIM [Concomitant]
  12. DIFLUCAN [Concomitant]
  13. SYNTHROID [Concomitant]
  14. CYTOVENE [Concomitant]
  15. MULTIVIT (VITAMINS NOS) [Concomitant]
  16. ASPIRIN [Concomitant]

REACTIONS (8)
  - ABDOMINAL PAIN UPPER [None]
  - BLOOD CREATININE INCREASED [None]
  - CLOSTRIDIUM COLITIS [None]
  - CYTOMEGALOVIRUS INFECTION [None]
  - DIARRHOEA [None]
  - DRUG LEVEL INCREASED [None]
  - DYSPEPSIA [None]
  - ENTEROCOLITIS VIRAL [None]
